FAERS Safety Report 23907634 (Version 2)
Quarter: 2025Q2

REPORT INFORMATION
  Report Type: Spontaneous
  Country: CN (occurrence: CN)
  Receive Date: 20240528
  Receipt Date: 20250608
  Transmission Date: 20250717
  Serious: Yes (Other)
  Sender: COHERUS
  Company Number: CN-SHANGHAI JUNSHI BIOSCIENCES CO., LTD.-CN2024010104

PATIENT

DRUGS (11)
  1. TORIPALIMAB [Suspect]
     Active Substance: TORIPALIMAB
     Indication: Melanoma recurrent
     Route: 041
     Dates: start: 20240503, end: 20240503
  2. TORIPALIMAB [Suspect]
     Active Substance: TORIPALIMAB
     Indication: Metastases to lymph nodes
  3. PACLITAXEL [Suspect]
     Active Substance: PACLITAXEL
     Indication: Melanoma recurrent
     Route: 041
     Dates: start: 20240504, end: 20240504
  4. PACLITAXEL [Suspect]
     Active Substance: PACLITAXEL
     Indication: Metastases to lymph nodes
  5. CISPLATIN [Suspect]
     Active Substance: CISPLATIN
     Indication: Melanoma recurrent
     Dosage: 40 MG, QD
     Route: 041
     Dates: start: 20240504, end: 20240504
  6. CISPLATIN [Suspect]
     Active Substance: CISPLATIN
     Indication: Metastases to lymph nodes
     Dosage: 40 MG, QD
     Route: 041
     Dates: start: 20240506, end: 20240507
  7. CELECOXIB [Concomitant]
     Active Substance: CELECOXIB
     Indication: Prophylaxis
     Dates: start: 20240504
  8. SODIUM CHLORIDE [Concomitant]
     Active Substance: SODIUM CHLORIDE
     Indication: Medication dilution
     Route: 041
     Dates: start: 20240503, end: 20240503
  9. SODIUM CHLORIDE [Concomitant]
     Active Substance: SODIUM CHLORIDE
     Route: 041
     Dates: start: 20240504, end: 20240504
  10. SODIUM CHLORIDE [Concomitant]
     Active Substance: SODIUM CHLORIDE
     Indication: Medication dilution
     Dosage: 300 ML, QD
     Route: 041
     Dates: start: 20240504, end: 20240504
  11. SODIUM CHLORIDE [Concomitant]
     Active Substance: SODIUM CHLORIDE
     Dosage: 300 ML, QD
     Route: 041
     Dates: start: 20240506, end: 20240507

REACTIONS (4)
  - White blood cell count decreased [Unknown]
  - Myalgia [Unknown]
  - Neutrophil count decreased [Unknown]
  - Off label use [Unknown]

NARRATIVE: CASE EVENT DATE: 20240503
